FAERS Safety Report 13114310 (Version 5)
Quarter: 2017Q3

REPORT INFORMATION
  Report Type: Spontaneous
  Country: KR (occurrence: KR)
  Receive Date: 20170113
  Receipt Date: 20170712
  Transmission Date: 20171127
  Serious: Yes (Hospitalization)
  Sender: FDA-Public Use
  Company Number: KR-009507513-1701KOR004923

PATIENT
  Age: 54 Year
  Sex: Female

DRUGS (32)
  1. DEXAMETHASONE SODIUM PHOSPHATE. [Concomitant]
     Active Substance: DEXAMETHASONE SODIUM PHOSPHATE
     Dosage: 12 MG, ONCE
     Route: 042
     Dates: start: 20161013, end: 20161013
  2. DEXAMETHASONE SODIUM PHOSPHATE. [Concomitant]
     Active Substance: DEXAMETHASONE SODIUM PHOSPHATE
     Dosage: 8 MG, ONCE
     Route: 042
     Dates: start: 20161014, end: 20161015
  3. ALOXI [Concomitant]
     Active Substance: PALONOSETRON HYDROCHLORIDE
     Indication: PREMEDICATION
     Dosage: 5 ML, ONCE
     Route: 042
     Dates: start: 20160811, end: 20160811
  4. ALOXI [Concomitant]
     Active Substance: PALONOSETRON HYDROCHLORIDE
     Dosage: 5 ML, ONCE
     Route: 042
     Dates: start: 20160912, end: 20160912
  5. CIMETIDINE [Concomitant]
     Active Substance: CIMETIDINE
     Dosage: 1 AMPULE, ONCE
     Route: 042
     Dates: start: 20160912, end: 20160912
  6. H-2 [Concomitant]
     Indication: PREMEDICATION
     Dosage: STRENGTH: 200/2 MG/ML
     Route: 042
     Dates: start: 20160811, end: 20160812
  7. ALIMTA [Concomitant]
     Active Substance: PEMETREXED DISODIUM
     Dosage: 780 MG, CYCLE 4, ONCE
     Route: 042
     Dates: start: 20161109, end: 20161109
  8. DEXAMETHASONE SODIUM PHOSPHATE. [Concomitant]
     Active Substance: DEXAMETHASONE SODIUM PHOSPHATE
     Dosage: 12 MG, ONCE
     Route: 042
     Dates: start: 20160912, end: 20160912
  9. DEXAMETHASONE SODIUM PHOSPHATE. [Concomitant]
     Active Substance: DEXAMETHASONE SODIUM PHOSPHATE
     Dosage: 12 MG, ONCE
     Route: 042
     Dates: start: 20161109, end: 20161109
  10. ALOXI [Concomitant]
     Active Substance: PALONOSETRON HYDROCHLORIDE
     Dosage: 5 ML, ONCE
     Route: 042
     Dates: start: 20161013, end: 20161013
  11. CIMETIDINE [Concomitant]
     Active Substance: CIMETIDINE
     Dosage: 1 AMPULE, ONCE
     Route: 042
     Dates: start: 20161109, end: 20161109
  12. H-2 [Concomitant]
     Dosage: STRENGTH: 200/2 MG/ML
     Route: 042
     Dates: start: 20160912, end: 20160912
  13. EMEND (FOSAPREPITANT DIMEGLUMINE) [Suspect]
     Active Substance: FOSAPREPITANT DIMEGLUMINE
     Dosage: 150 MG, ONCE
     Route: 042
     Dates: start: 20160912, end: 20160912
  14. EMEND (FOSAPREPITANT DIMEGLUMINE) [Suspect]
     Active Substance: FOSAPREPITANT DIMEGLUMINE
     Dosage: 150 MG, ONCE
     Route: 042
     Dates: start: 20161013, end: 20161013
  15. EMEND (FOSAPREPITANT DIMEGLUMINE) [Suspect]
     Active Substance: FOSAPREPITANT DIMEGLUMINE
     Dosage: 150 MG, ONCE
     Route: 042
     Dates: start: 20161109, end: 20161109
  16. CISPLAN [Concomitant]
     Active Substance: CISPLATIN
     Dosage: STRENGHT: 50 MG/100 ML, 116 MG, CYCLE 3, ONCE
     Route: 042
     Dates: start: 20161013, end: 20161013
  17. ALIMTA [Concomitant]
     Active Substance: PEMETREXED DISODIUM
     Dosage: 785 MG, CYCLE 2, ONCE
     Route: 042
     Dates: start: 20160912, end: 20160912
  18. CISPLAN [Concomitant]
     Active Substance: CISPLATIN
     Indication: LUNG NEOPLASM MALIGNANT
     Dosage: STRENGHT: 50 MG/100 ML, 118.5 MG, CYCLE 1, ONCE
     Route: 042
     Dates: start: 20160811, end: 20160811
  19. TYLENOL [Concomitant]
     Active Substance: ACETAMINOPHEN
     Indication: PROPHYLAXIS
     Dosage: 1 TABLET, TID
     Route: 048
     Dates: start: 20160812, end: 20160816
  20. EMEND (FOSAPREPITANT DIMEGLUMINE) [Suspect]
     Active Substance: FOSAPREPITANT DIMEGLUMINE
     Indication: PROPHYLAXIS OF NAUSEA AND VOMITING
     Dosage: 150 MG, ONCE
     Route: 042
     Dates: start: 20160811, end: 20160811
  21. ALIMTA [Concomitant]
     Active Substance: PEMETREXED DISODIUM
     Indication: LUNG NEOPLASM MALIGNANT
     Dosage: 790 MG, CYCLE 1, ONCE
     Route: 042
     Dates: start: 20160811, end: 20160811
  22. DEXAMETHASONE SODIUM PHOSPHATE. [Concomitant]
     Active Substance: DEXAMETHASONE SODIUM PHOSPHATE
     Indication: PROPHYLAXIS
     Dosage: 8 MG, ONCE
     Route: 042
     Dates: start: 20160812, end: 20160812
  23. MACPERAN [Concomitant]
     Active Substance: METOCLOPRAMIDE HYDROCHLORIDE
     Indication: PROPHYLAXIS
     Dosage: 5 MG, TID
     Route: 048
     Dates: start: 20160812
  24. ALOXI [Concomitant]
     Active Substance: PALONOSETRON HYDROCHLORIDE
     Dosage: 5 ML, ONCE
     Route: 042
     Dates: start: 20161109, end: 20161109
  25. CIMETIDINE [Concomitant]
     Active Substance: CIMETIDINE
     Dosage: 1 AMPULE, ONCE
     Route: 042
     Dates: start: 20161013, end: 20161013
  26. ALIMTA [Concomitant]
     Active Substance: PEMETREXED DISODIUM
     Dosage: 775 MG, CYCLE 3, ONCE
     Route: 042
     Dates: start: 20161013, end: 20161013
  27. DEXAMETHASONE SODIUM PHOSPHATE. [Concomitant]
     Active Substance: DEXAMETHASONE SODIUM PHOSPHATE
     Indication: PREMEDICATION
     Dosage: 12 MG, ONCE
     Route: 042
     Dates: start: 20160811, end: 20160811
  28. CISPLAN [Concomitant]
     Active Substance: CISPLATIN
     Dosage: STRENGHT: 50 MG/100 ML, 117 MG, CYCLE 4, ONCE
     Route: 042
     Dates: start: 20161109, end: 20161109
  29. CIMETIDINE [Concomitant]
     Active Substance: CIMETIDINE
     Indication: PREMEDICATION
     Dosage: 1 AMPULE, ONCE
     Route: 042
     Dates: start: 20160811, end: 20160812
  30. H-2 [Concomitant]
     Dosage: STRENGTH: 200/2 MG/ML
     Route: 042
     Dates: start: 20161013, end: 20161013
  31. H-2 [Concomitant]
     Dosage: STRENGTH: 200/2 MG/ML
     Route: 042
     Dates: start: 20161109, end: 20161109
  32. CISPLAN [Concomitant]
     Active Substance: CISPLATIN
     Dosage: STRENGHT: 50 MG/100 ML, 118 MG, CYCLE 2, ONCE
     Route: 042
     Dates: start: 20160912, end: 20160912

REACTIONS (1)
  - Pyrexia [Recovered/Resolved]

NARRATIVE: CASE EVENT DATE: 20160812
